FAERS Safety Report 25988814 (Version 1)
Quarter: 2025Q4

REPORT INFORMATION
  Report Type: Spontaneous
  Country: CA (occurrence: CA)
  Receive Date: 20251103
  Receipt Date: 20251103
  Transmission Date: 20260117
  Serious: Yes (Hospitalization)
  Sender: TEVA
  Company Number: CA-TEVA-VS-3387807

PATIENT
  Age: 30 Year
  Sex: Male
  Weight: 75 kg

DRUGS (3)
  1. PEMETREXED [Suspect]
     Active Substance: PEMETREXED
     Indication: Lung adenocarcinoma
     Dosage: PEMETREXED DISODIUM FOR INJECTION, DOSE FORM: POWDER FOR SOLUTION INTRAVENOUS
     Route: 042
  2. YERVOY [Suspect]
     Active Substance: IPILIMUMAB
     Indication: Lung adenocarcinoma
     Dosage: YERVOY FOR I.V. INFUSION ONLY. 50MG/10ML AND 200MG/40 ML SINGLE USE VIALS., DOSE FORM: SOLUTION I...
     Route: 042
  3. OPDIVO [Suspect]
     Active Substance: NIVOLUMAB
     Indication: Lung adenocarcinoma
     Dosage: 100MG/10ML (SINGLE-USE VIAL)
     Route: 042

REACTIONS (4)
  - Rectal haemorrhage [Recovering/Resolving]
  - Colitis ulcerative [Recovering/Resolving]
  - General physical health deterioration [Recovering/Resolving]
  - Diarrhoea [Recovering/Resolving]
